FAERS Safety Report 6275991-7 (Version None)
Quarter: 2009Q3

REPORT INFORMATION
  Report Type: 
  Country: None (occurrence: None)
  Receive Date: 20090720
  Receipt Date: 20090706
  Transmission Date: 20100115
  Serious: Yes (Death)
  Sender: FDA-Public Use
  Company Number: HCDA20090003

PATIENT
  Age: 27 Year
  Sex: Female

DRUGS (5)
  1. HYDROCODONE [Suspect]
     Indication: MUSCULOSKELETAL PAIN
     Dosage: 7.5 MG, FOUR TIMES DAILY,  PER ORAL
     Route: 048
  2. METHADONE HCL [Suspect]
     Indication: MUSCULOSKELETAL PAIN
     Dosage: 10 MG, EVERY NIGHT, PER ORAL
     Route: 048
  3. DOXEPIN HCL [Suspect]
  4. DIAZEPAM [Suspect]
  5. TEMAZEPAM [Suspect]

REACTIONS (3)
  - OVERDOSE [None]
  - REFUSAL OF TREATMENT BY PATIENT [None]
  - SYNCOPE [None]
